FAERS Safety Report 24190423 (Version 1)
Quarter: 2024Q3

REPORT INFORMATION
  Report Type: Spontaneous
  Country: US (occurrence: US)
  Receive Date: 20240808
  Receipt Date: 20240808
  Transmission Date: 20241017
  Serious: No
  Sender: GLAXOSMITHKLINE
  Company Number: US-GSKCCFUS-Case-02065438_AE-114279

PATIENT
  Sex: Female

DRUGS (2)
  1. NUCALA [Suspect]
     Active Substance: MEPOLIZUMAB
     Indication: Eosinophilic granulomatosis with polyangiitis
     Dosage: 300 MG (SAME SITTING)
     Dates: start: 202406
  2. NUCALA [Suspect]
     Active Substance: MEPOLIZUMAB
     Indication: Nasal polyps
     Dosage: 100 MG

REACTIONS (5)
  - Pruritus [Recovered/Resolved]
  - Fatigue [Unknown]
  - Somnolence [Unknown]
  - Pain in extremity [Unknown]
  - Injection site pain [Unknown]
